FAERS Safety Report 13874158 (Version 4)
Quarter: 2018Q2

REPORT INFORMATION
  Report Type: Spontaneous
  Country: US (occurrence: US)
  Receive Date: 20170816
  Receipt Date: 20180522
  Transmission Date: 20180711
  Serious: Yes (Hospitalization)
  Sender: FDA-Public Use
  Company Number: US-ACTELION-A-NJ2017-157996

PATIENT
  Age: 77 Year
  Sex: Female

DRUGS (15)
  1. MYLANTA [Concomitant]
     Active Substance: ALUMINUM HYDROXIDE\DIMETHICONE\MAGNESIUM HYDROXIDE
  2. AMLODIPINE BESYLATE. [Concomitant]
     Active Substance: AMLODIPINE BESYLATE
  3. ALLOPURINOL. [Concomitant]
     Active Substance: ALLOPURINOL
  4. MUCINEX [Concomitant]
     Active Substance: GUAIFENESIN
  5. PRAVASTATIN SODIUM. [Concomitant]
     Active Substance: PRAVASTATIN SODIUM
  6. SYMBICORT [Concomitant]
     Active Substance: BUDESONIDE\FORMOTEROL FUMARATE DIHYDRATE
  7. ADAZIN [Concomitant]
     Active Substance: BENZOCAINE\CAPSAICIN\LIDOCAINE\METHYL SALICYLATE
  8. ASPIRIN. [Concomitant]
     Active Substance: ASPIRIN
  9. KLOR-CON [Concomitant]
     Active Substance: POTASSIUM CHLORIDE
  10. MAGNESIUM [Concomitant]
     Active Substance: MAGNESIUM
  11. TRAMADOL HCL [Concomitant]
     Active Substance: TRAMADOL HYDROCHLORIDE
  12. VITAMIN D [Concomitant]
     Active Substance: CHOLECALCIFEROL
  13. COLACE [Concomitant]
     Active Substance: DOCUSATE SODIUM
  14. OMEPRAZOLE. [Concomitant]
     Active Substance: OMEPRAZOLE
  15. OPSUMIT [Suspect]
     Active Substance: MACITENTAN
     Indication: PULMONARY ARTERIAL HYPERTENSION
     Dosage: 10 MG, UNK
     Route: 048
     Dates: start: 20160829

REACTIONS (10)
  - Fluid retention [Recovered/Resolved]
  - Deafness [Unknown]
  - Lung infiltration [Recovered/Resolved]
  - Cardiac failure congestive [Unknown]
  - Acute sinusitis [Unknown]
  - Dyspnoea [Recovered/Resolved]
  - Hypokalaemia [Unknown]
  - Swelling [Recovered/Resolved]
  - Chronic obstructive pulmonary disease [Unknown]
  - Pneumonia [Recovered/Resolved]

NARRATIVE: CASE EVENT DATE: 20161023
